FAERS Safety Report 8347365-6 (Version None)
Quarter: 2012Q2

REPORT INFORMATION
  Report Type: 
  Country: None (occurrence: None)
  Receive Date: 20120507
  Receipt Date: 20120424
  Transmission Date: 20120825
  Serious: Yes (Other)
  Sender: FDA-Public Use
  Company Number: 2011SP059039

PATIENT
  Sex: Female

DRUGS (3)
  1. VICTRELIS [Suspect]
     Indication: HEPATITIS C
     Dates: start: 20120109
  2. RIBAVIRIN [Suspect]
     Indication: HEPATITIS C
  3. PEG-INTRON [Suspect]
     Indication: HEPATITIS C
     Dates: start: 20111212

REACTIONS (17)
  - ANAEMIA [None]
  - PRURITUS [None]
  - HYPOTONIA [None]
  - ALOPECIA [None]
  - CONFUSIONAL STATE [None]
  - BIPOLAR DISORDER [None]
  - ALTERED STATE OF CONSCIOUSNESS [None]
  - STOMATITIS [None]
  - WEIGHT DECREASED [None]
  - PEAU D'ORANGE [None]
  - PAIN [None]
  - NAUSEA [None]
  - FEAR [None]
  - DISORIENTATION [None]
  - HEAD BANGING [None]
  - SKIN WRINKLING [None]
  - HAIR COLOUR CHANGES [None]
